FAERS Safety Report 4333501-5 (Version None)
Quarter: 2004Q2

REPORT INFORMATION
  Report Type: 
  Country: None (occurrence: None)
  Receive Date: 20040401
  Receipt Date: 20040326
  Transmission Date: 20050107
  Serious: Yes (Disabling, Other)
  Sender: FDA-Public Use
  Company Number: 2004017365

PATIENT
  Age: 19 Year
  Sex: Female
  Weight: 63.5036 kg

DRUGS (6)
  1. UNASYN [Suspect]
     Indication: ESCHERICHIA INFECTION
     Dosage: 6 GRAM (BID), INTRAVENOUS
     Route: 042
     Dates: start: 20031208, end: 20040305
  2. UNASYN [Suspect]
     Indication: URINARY TRACT INFECTION
     Dosage: 6 GRAM (BID), INTRAVENOUS
     Route: 042
     Dates: start: 20031208, end: 20040305
  3. MORPHINE SULFATE [Concomitant]
  4. ALL OTHER THERAPEUTIC PRODUCTS [Concomitant]
  5. PHENAZOPYRIDINE HYDROCHLORIDE (PHENAZOPYRIDINE HYDROCHLORIDE) [Concomitant]
  6. MEDROXYPROGESTERONE ACETATE [Concomitant]

REACTIONS (22)
  - AMNESIA [None]
  - BURNING SENSATION [None]
  - CATHETER RELATED COMPLICATION [None]
  - CHEST PAIN [None]
  - CONFUSIONAL STATE [None]
  - DISEASE RECURRENCE [None]
  - DRUG HYPERSENSITIVITY [None]
  - EOSINOPHILIA [None]
  - ESCHERICHIA URINARY TRACT INFECTION [None]
  - FEELING ABNORMAL [None]
  - INCOHERENT [None]
  - LETHARGY [None]
  - MULTIPLE-DRUG RESISTANCE [None]
  - PAIN [None]
  - PHARMACEUTICAL PRODUCT COMPLAINT [None]
  - PROCEDURAL SITE REACTION [None]
  - PRURITUS [None]
  - RASH [None]
  - RESPIRATORY TRACT INFECTION [None]
  - SENSATION OF HEAVINESS [None]
  - VOMITING [None]
  - VOMITING PROJECTILE [None]
